FAERS Safety Report 5066385-0 (Version None)
Quarter: 2006Q3

REPORT INFORMATION
  Report Type: 
  Country: None (occurrence: None)
  Receive Date: 20060801
  Receipt Date: 20060724
  Transmission Date: 20061208
  Serious: Yes (Death, Hospitalization)
  Sender: FDA-Public Use
  Company Number: JM-AVENTIS-200617674GDDC

PATIENT
  Age: 47 Year
  Sex: Female

DRUGS (1)
  1. DDAVP [Suspect]
     Indication: DIABETES INSIPIDUS

REACTIONS (7)
  - CEREBRAL ISCHAEMIA [None]
  - DEHYDRATION [None]
  - HYPOVOLAEMIC SHOCK [None]
  - MULTI-ORGAN FAILURE [None]
  - THROMBOSIS [None]
  - THROMBOTIC THROMBOCYTOPENIC PURPURA [None]
  - TROPONIN INCREASED [None]
